FAERS Safety Report 5917773-9 (Version None)
Quarter: 2008Q4

REPORT INFORMATION
  Report Type: 
  Country: None (occurrence: None)
  Receive Date: 20081014
  Receipt Date: 20080929
  Transmission Date: 20090506
  Serious: Yes (Other)
  Sender: FDA-Public Use
  Company Number: PHHY2008ZA22905

PATIENT
  Sex: Male

DRUGS (2)
  1. TEGRETOL [Suspect]
     Dosage: 600 MG DAILY
  2. TEGRETOL [Suspect]
     Dosage: 600 MG DAILY

REACTIONS (5)
  - AURA [None]
  - DRUG INEFFECTIVE [None]
  - EPILEPSY [None]
  - PRODUCT QUALITY ISSUE [None]
  - SPEECH DISORDER [None]
